FAERS Safety Report 23533065 (Version 4)
Quarter: 2025Q2

REPORT INFORMATION
  Report Type: Spontaneous
  Country: US (occurrence: US)
  Receive Date: 20240216
  Receipt Date: 20250407
  Transmission Date: 20250716
  Serious: Yes (Hospitalization, Other)
  Sender: PFIZER
  Company Number: US-PFIZER INC-PV202300098919

PATIENT
  Age: 77 Year
  Sex: Male
  Weight: 74.2 kg

DRUGS (6)
  1. IBRANCE [Suspect]
     Active Substance: PALBOCICLIB
     Indication: Hormone receptor positive breast cancer
     Dates: start: 202002
  2. IBRANCE [Suspect]
     Active Substance: PALBOCICLIB
     Indication: Breast cancer male
     Route: 048
     Dates: start: 20230511
  3. IBRANCE [Suspect]
     Active Substance: PALBOCICLIB
     Indication: Metastases to lung
     Route: 048
     Dates: start: 202306
  4. FASLODEX [Concomitant]
     Active Substance: FULVESTRANT
  5. ELIQUIS [Concomitant]
     Active Substance: APIXABAN
  6. DIGOXIN [Concomitant]
     Active Substance: DIGOXIN

REACTIONS (17)
  - Neuropathy peripheral [Not Recovered/Not Resolved]
  - Atrial fibrillation [Unknown]
  - Coronary artery disease [Unknown]
  - Metastases to bone [Unknown]
  - Metastases to lung [Unknown]
  - Fatigue [Not Recovered/Not Resolved]
  - Blood creatinine increased [Unknown]
  - Blood glucose increased [Unknown]
  - Glomerular filtration rate decreased [Unknown]
  - Haematocrit decreased [Unknown]
  - Haemoglobin decreased [Unknown]
  - Mean cell volume increased [Unknown]
  - Neutrophil count decreased [Unknown]
  - Platelet count decreased [Unknown]
  - Red blood cell count decreased [Unknown]
  - White blood cell count decreased [Unknown]
  - Product dispensing error [Unknown]

NARRATIVE: CASE EVENT DATE: 20210801
